FAERS Safety Report 7971734-7 (Version None)
Quarter: 2011Q4

REPORT INFORMATION
  Report Type: 
  Country: None (occurrence: None)
  Receive Date: 20111212
  Receipt Date: 20111201
  Transmission Date: 20120403
  Serious: Yes (Hospitalization)
  Sender: FDA-Public Use
  Company Number: KR-ASTRAZENECA-2011SE71319

PATIENT
  Age: 20644 Day
  Sex: Female
  Weight: 75 kg

DRUGS (16)
  1. PLAVIX [Concomitant]
     Indication: CORONARY ARTERY OCCLUSION
     Route: 048
     Dates: start: 20060410
  2. AMLODIPINE [Concomitant]
     Indication: CORONARY ARTERY OCCLUSION
     Route: 048
     Dates: start: 20060410
  3. DILTERAN [Concomitant]
     Indication: HYPERTENSION
     Route: 048
     Dates: start: 20060410
  4. CRESTOR [Suspect]
     Indication: HYPERLIPIDAEMIA
     Route: 048
     Dates: start: 20060410
  5. ASPIRIN [Concomitant]
     Indication: HYPERTENSION
     Route: 048
     Dates: start: 20060410
  6. COZAAR [Concomitant]
     Indication: CORONARY ARTERY OCCLUSION
     Route: 048
     Dates: start: 20060410
  7. DILTERAN [Concomitant]
     Indication: CORONARY ARTERY OCCLUSION
     Route: 048
     Dates: start: 20060410
  8. COBIS [Concomitant]
     Indication: CORONARY ARTERY OCCLUSION
     Dosage: 2.5/6.25
     Route: 048
     Dates: start: 20060320
  9. PLETAL [Concomitant]
     Indication: CORONARY ARTERY OCCLUSION
     Route: 048
     Dates: start: 20060410
  10. COZAAR [Concomitant]
     Indication: HYPERTENSION
     Route: 048
     Dates: start: 20060410
  11. AMLODIPINE [Concomitant]
     Indication: HYPERTENSION
     Route: 048
     Dates: start: 20060410
  12. PLETAL [Concomitant]
     Indication: HYPERTENSION
     Route: 048
     Dates: start: 20060410
  13. COBIS [Concomitant]
     Indication: HYPERTENSION
     Dosage: 2.5/6.25
     Route: 048
     Dates: start: 20060320
  14. PLAVIX [Concomitant]
     Indication: HYPERTENSION
     Route: 048
     Dates: start: 20060410
  15. SYNTHROID [Concomitant]
     Indication: THYROID CANCER
     Route: 048
     Dates: start: 20060314
  16. ASPIRIN [Concomitant]
     Indication: CORONARY ARTERY OCCLUSION
     Route: 048
     Dates: start: 20060410

REACTIONS (1)
  - THYROID CANCER [None]
